FAERS Safety Report 8723230 (Version 9)
Quarter: 2014Q4

REPORT INFORMATION
  Report Type: Spontaneous
  Country: US (occurrence: US)
  Receive Date: 20120814
  Receipt Date: 20141009
  Transmission Date: 20150529
  Serious: Yes (Other)
  Sender: FDA-Public Use
  Company Number: US-ASTRAZENECA-2012SE56168

PATIENT
  Age: 60 Year
  Sex: Female
  Weight: 88.5 kg

DRUGS (8)
  1. RHINOCORT AQUA [Suspect]
     Active Substance: BUDESONIDE
     Indication: MULTIPLE ALLERGIES
     Dosage: TAKING HALF THE DOSE
     Route: 045
  2. MORPHINE (NON AZ PRODUCT) [Suspect]
     Active Substance: MORPHINE
     Route: 065
  3. RHINOCORT AQUA [Suspect]
     Active Substance: BUDESONIDE
     Indication: MULTIPLE ALLERGIES
     Dosage: 1 SPRAY EVERY OTHER DAY
     Route: 045
  4. RHINOCORT AQUA [Suspect]
     Active Substance: BUDESONIDE
     Indication: MULTIPLE ALLERGIES
     Dosage: 64 UG, 1 SQUIRT UP EACH NOSTRIL ONE A DAY AT BEDTIME
     Route: 045
     Dates: start: 2011
  5. DEMEROL [Suspect]
     Active Substance: MEPERIDINE HYDROCHLORIDE
     Route: 065
  6. RHINOCORT AQUA [Suspect]
     Active Substance: BUDESONIDE
     Indication: SINUS DISORDER
     Dosage: 64 UG, 1 SQUIRT UP EACH NOSTRIL ONE A DAY AT BEDTIME
     Route: 045
     Dates: start: 2011
  7. RHINOCORT AQUA [Suspect]
     Active Substance: BUDESONIDE
     Indication: SINUS DISORDER
     Dosage: 1 SPRAY EVERY OTHER DAY
     Route: 045
  8. RHINOCORT AQUA [Suspect]
     Active Substance: BUDESONIDE
     Indication: SINUS DISORDER
     Dosage: TAKING HALF THE DOSE
     Route: 045

REACTIONS (24)
  - Increased upper airway secretion [Unknown]
  - Productive cough [Unknown]
  - Weight increased [Unknown]
  - Expired product administered [Unknown]
  - Intentional product misuse [Unknown]
  - Adverse event [Unknown]
  - Dysphonia [Unknown]
  - Malaise [Unknown]
  - Drug dose omission [Unknown]
  - Paranasal sinus hypersecretion [Unknown]
  - Body height decreased [Unknown]
  - Epistaxis [Unknown]
  - Ear disorder [Not Recovered/Not Resolved]
  - Oropharyngeal pain [Unknown]
  - Dyspnoea [Unknown]
  - Restlessness [Unknown]
  - Sinus disorder [Unknown]
  - Activities of daily living impaired [Unknown]
  - Cough [Unknown]
  - Nausea [Unknown]
  - Adverse drug reaction [Unknown]
  - Menopause [Unknown]
  - Ocular hyperaemia [Unknown]
  - Sleep disorder due to a general medical condition [Unknown]

NARRATIVE: CASE EVENT DATE: 2012
